FAERS Safety Report 9228741 (Version 2)
Quarter: 2013Q2

REPORT INFORMATION
  Report Type: Report from Study
  Country: BE (occurrence: BE)
  Receive Date: 20130412
  Receipt Date: 20130422
  Transmission Date: 20140414
  Serious: Yes (Hospitalization)
  Sender: FDA-Public Use
  Company Number: BE-ROCHE-1161705

PATIENT
  Age: 47 Year
  Sex: Female
  Weight: 74 kg

DRUGS (20)
  1. TRASTUZUMAB EMTANSINE [Suspect]
     Indication: BREAST CANCER METASTATIC
     Dosage: LAST DOSE TAKEN: 258.12MG
     Route: 042
     Dates: start: 20120515
  2. OMEPRAZOLE [Concomitant]
     Indication: GASTROOESOPHAGEAL REFLUX DISEASE
     Route: 065
     Dates: start: 200812, end: 20121212
  3. OMEPRAZOLE [Concomitant]
     Indication: GASTRIC DISORDER
     Route: 065
     Dates: start: 20121217
  4. DAFALGAN [Concomitant]
     Indication: PAIN
     Route: 065
     Dates: start: 201205
  5. ULTRA K [Concomitant]
     Indication: HYPOKALAEMIA
     Route: 065
     Dates: end: 20121212
  6. MAGNESIUM CARBONATE [Concomitant]
     Indication: HYPOMAGNESAEMIA
     Route: 065
     Dates: end: 20121212
  7. ALPRAZOLAM [Concomitant]
     Indication: ANXIETY
     Route: 065
     Dates: end: 20121212
  8. CANTABILINE [Concomitant]
     Indication: GALLBLADDER DISORDER
     Route: 065
     Dates: end: 20121212
  9. CYMBALTA [Concomitant]
     Indication: DEPRESSION
     Route: 065
     Dates: end: 20121212
  10. LORMETAZEPAM [Concomitant]
     Indication: INSOMNIA
     Route: 065
     Dates: end: 20121212
  11. LORMETAZEPAM [Concomitant]
     Route: 065
     Dates: start: 20121217
  12. SPIRONOLACTONE [Concomitant]
     Indication: OEDEMA
  13. XYZALL [Concomitant]
     Indication: PRURITUS
     Route: 065
     Dates: start: 20120605, end: 20121212
  14. BURINEX [Concomitant]
     Indication: OEDEMA
     Route: 065
     Dates: start: 20120607, end: 20121212
  15. BURINEX [Concomitant]
     Route: 065
     Dates: start: 201301
  16. TRAZOLAN [Concomitant]
     Indication: DEPRESSION
     Route: 065
     Dates: end: 20121212
  17. ZALDIAR [Concomitant]
     Indication: PAIN
     Route: 065
     Dates: start: 20120918, end: 20121212
  18. COLCHICINE [Concomitant]
     Indication: ARTHRITIS
     Route: 065
     Dates: start: 20121221, end: 20121223
  19. ALDACTONE [Concomitant]
     Indication: OEDEMA
     Route: 065
     Dates: start: 20121212
  20. TEARS NATURALE [Concomitant]
     Indication: DRY EYE
     Route: 065
     Dates: start: 20121211, end: 20121212

REACTIONS (2)
  - Infection [Recovered/Resolved]
  - Malaise [Recovered/Resolved]
